FAERS Safety Report 5924982-1 (Version None)
Quarter: 2008Q3

REPORT INFORMATION
  Report Type: 
  Country: None (occurrence: None)
  Receive Date: 20080909
  Receipt Date: 20080613
  Transmission Date: 20090109
  Serious: Yes (Death)
  Sender: FDA-Public Use
  Company Number: 163-20785-08040412

PATIENT
  Age: 1 Year
  Sex: Female
  Weight: 11.5 kg

DRUGS (9)
  1. THALOMID [Suspect]
     Indication: BRAIN NEOPLASM MALIGNANT
     Dosage: 100 MG, 2 IN 1 D, ORAL
     Route: 048
     Dates: start: 20080111, end: 20080304
  2. CELEBREX [Suspect]
     Indication: BRAIN NEOPLASM MALIGNANT
     Dosage: 200 MG, DAILY, ORAL
     Route: 048
     Dates: start: 20080110, end: 20080304
  3. FENOFIBRATE [Suspect]
     Indication: BRAIN NEOPLASM MALIGNANT
     Dosage: 48 MG, DAILY, ORAL
     Route: 048
     Dates: start: 20080109, end: 20080304
  4. ETOPOSIDE [Suspect]
     Indication: BRAIN NEOPLASM MALIGNANT
     Dosage: 16  MG, ALTERNATING WITH CYCLOPHOSPHAMI Q 21DAYS, ORAL
     Route: 048
     Dates: start: 20080109, end: 20080304
  5. CYCLOPHOSPHAMIDE [Suspect]
     Indication: BRAIN NEOPLASM MALIGNANT
     Dosage: ALTERNATING WITH ETOPOSIDE Q 21 DAYS
     Dates: start: 20080109, end: 20080313
  6. MEPRON [Concomitant]
  7. KEPPRA [Concomitant]
  8. LACTULOSE [Concomitant]
  9. COLACE (DOCUSATE SODIUM) [Concomitant]

REACTIONS (1)
  - NEOPLASM PROGRESSION [None]
